FAERS Safety Report 8635119 (Version 4)
Quarter: 2012Q4

REPORT INFORMATION
  Report Type: 
  Country: US (occurrence: US)
  Receive Date: 20120626
  Receipt Date: 20120925
  Transmission Date: 20130627
  Serious: Yes (Other)
  Sender: FDA-Public Use
  Company Number: US-BAYER-2012-061755

PATIENT
  Age: 29 Year
  Sex: Female
  Weight: 79 kg

DRUGS (1)
  1. MIRENA [Suspect]
     Indication: CONTRACEPTION
     Dosage: UNK
     Route: 015
     Dates: start: 20070723, end: 20120615

REACTIONS (5)
  - Vaginal haemorrhage [Recovering/Resolving]
  - Abdominal pain lower [Recovering/Resolving]
  - Menstruation irregular [Not Recovered/Not Resolved]
  - Breast swelling [Not Recovered/Not Resolved]
  - Breast tenderness [Not Recovered/Not Resolved]
